FAERS Safety Report 17980591 (Version 2)
Quarter: 2020Q3

REPORT INFORMATION
  Report Type: Spontaneous
  Country: FR (occurrence: FR)
  Receive Date: 20200704
  Receipt Date: 20200720
  Transmission Date: 20201103
  Serious: Yes (Other)
  Sender: FDA-Public Use
  Company Number: FR-TEVA-2020-FR-1794825

PATIENT
  Age: 83 Year
  Sex: Male
  Weight: 74 kg

DRUGS (3)
  1. RIFABUTINE [Suspect]
     Active Substance: RIFABUTIN
     Indication: DEVICE RELATED INFECTION
     Dosage: 300 MG
     Route: 048
     Dates: start: 20200430
  2. CLARITHROMYCINE [Suspect]
     Active Substance: CLARITHROMYCIN
     Indication: DEVICE RELATED INFECTION
     Dosage: 500 MG
     Route: 048
     Dates: start: 20200430
  3. ETHAMBUTOL (CHLORHYDRATE D) [Suspect]
     Active Substance: ETHAMBUTOL HYDROCHLORIDE
     Indication: DEVICE RELATED INFECTION
     Dosage: 1000 MG
     Route: 048
     Dates: start: 20200430

REACTIONS (2)
  - Thrombocytopenia [Recovered/Resolved]
  - Neutropenia [Recovering/Resolving]

NARRATIVE: CASE EVENT DATE: 20200604
